FAERS Safety Report 7281425-6 (Version None)
Quarter: 2011Q1

REPORT INFORMATION
  Report Type: 
  Country: None (occurrence: None)
  Receive Date: 20110203
  Receipt Date: 20110203
  Transmission Date: 20110831
  Serious: Yes (Other)
  Sender: FDA-Public Use
  Company Number: None

PATIENT
  Age: 41 Year
  Sex: Female
  Weight: 158.759 kg

DRUGS (2)
  1. TRAZODONE HCL [Suspect]
     Indication: INSOMNIA
     Dosage: 1-2 DAILY AT BEDTIME PO
     Route: 048
     Dates: start: 20110126
  2. TRAZODONE HCL [Suspect]
     Indication: DEPRESSION
     Dosage: 1-2 DAILY AT BEDTIME PO
     Route: 048
     Dates: start: 20110126

REACTIONS (28)
  - LIBIDO DECREASED [None]
  - DIZZINESS [None]
  - MYALGIA [None]
  - FATIGUE [None]
  - MEMORY IMPAIRMENT [None]
  - PAIN IN EXTREMITY [None]
  - COORDINATION ABNORMAL [None]
  - DISTURBANCE IN ATTENTION [None]
  - HYPOAESTHESIA [None]
  - DRY MOUTH [None]
  - HEADACHE [None]
  - OROPHARYNGEAL PAIN [None]
  - JOINT SWELLING [None]
  - CHROMATURIA [None]
  - DYSPNOEA [None]
  - ASTHENIA [None]
  - DISTURBANCE IN SEXUAL AROUSAL [None]
  - NASAL CONGESTION [None]
  - CONFUSIONAL STATE [None]
  - OEDEMA PERIPHERAL [None]
  - GAIT DISTURBANCE [None]
  - CONSTIPATION [None]
  - SOMNOLENCE [None]
  - PRURITUS [None]
  - WEIGHT FLUCTUATION [None]
  - INSOMNIA [None]
  - BALANCE DISORDER [None]
  - SLUGGISHNESS [None]
